FAERS Safety Report 10549332 (Version 1)
Quarter: 2014Q4

REPORT INFORMATION
  Report Type: Spontaneous
  Country: US (occurrence: None)
  Receive Date: 20141016
  Receipt Date: 20141016
  Transmission Date: 20150529
  Serious: No
  Sender: FDA-Public Use
  Company Number: CABO-14004492

PATIENT
  Age: 69 Year
  Sex: Female
  Weight: 59.1 kg

DRUGS (3)
  1. LEXAPRO [Concomitant]
     Active Substance: ESCITALOPRAM OXALATE
  2. COMETRIQ [Suspect]
     Active Substance: CABOZANTINIB S-MALATE
     Indication: RENAL CANCER
     Route: 048
     Dates: start: 20140703, end: 20140716
  3. INLYTA (AXITINIB) [Concomitant]

REACTIONS (9)
  - Decreased appetite [None]
  - Oral mucosal blistering [None]
  - Oropharyngeal blistering [None]
  - Dysphonia [None]
  - Fatigue [None]
  - Chills [None]
  - Alopecia [None]
  - Tooth abscess [None]
  - Diarrhoea [None]

NARRATIVE: CASE EVENT DATE: 2014
